FAERS Safety Report 10264800 (Version 1)
Quarter: 2014Q2

REPORT INFORMATION
  Report Type: Spontaneous
  Country: US (occurrence: US)
  Receive Date: 20140627
  Receipt Date: 20140627
  Transmission Date: 20141212
  Serious: No
  Sender: FDA-Public Use
  Company Number: US-B.I. PHARMACEUTICALS,INC./RIDGEFIELD-2014-BI-28373BP

PATIENT
  Sex: Female
  Weight: 95 kg

DRUGS (5)
  1. PRADAXA [Suspect]
     Indication: ATRIAL FIBRILLATION
     Dosage: 300 MG
     Route: 048
     Dates: start: 2012
  2. ATENOLOL/CHLORTHALIDONE [Concomitant]
     Indication: HYPERTENSION
     Dosage: STRENGTH: 50 MG/25 MG; DAILY DOSE: 50 MG/25 MG
     Route: 048
     Dates: start: 1980
  3. GABAPENTIN [Concomitant]
     Indication: BACK PAIN
     Dosage: 800 MG
     Route: 048
  4. ALLOPURINOL [Concomitant]
     Indication: GOUT
     Dosage: 300 MG
     Route: 048
     Dates: start: 2011
  5. TRAMADOL [Concomitant]
     Route: 048

REACTIONS (3)
  - Dyspepsia [Not Recovered/Not Resolved]
  - Hot flush [Not Recovered/Not Resolved]
  - Hypotension [Not Recovered/Not Resolved]
